FAERS Safety Report 5351987-4 (Version None)
Quarter: 2007Q2

REPORT INFORMATION
  Report Type: 
  Country: None (occurrence: None)
  Receive Date: 20070611
  Receipt Date: 20070529
  Transmission Date: 20071010
  Serious: Yes (Other)
  Sender: FDA-Public Use
  Company Number: PHBS2007FI09314

PATIENT
  Age: 48 Year
  Sex: Female

DRUGS (3)
  1. LESCOL [Suspect]
     Dosage: 80 MG AS A DEPOT
     Route: 065
  2. BURANA [Concomitant]
     Dates: start: 20061201
  3. ZANIDIP [Concomitant]
     Indication: HYPERTENSION

REACTIONS (1)
  - GASTRIC ULCER [None]
